FAERS Safety Report 8024535 (Version 2)
Quarter: 2012Q4

REPORT INFORMATION
  Report Type: 
  Country: US (occurrence: US)
  Receive Date: 20110707
  Receipt Date: 20121029
  Transmission Date: 20130627
  Serious: Yes (Hospitalization)
  Sender: FDA-Public Use
  Company Number: US-AMGEN-USACT2011032275

PATIENT
  Age: 64 Year
  Sex: Female

DRUGS (5)
  1. PEGFILGRASTIM [Suspect]
     Indication: BREAST CANCER
  2. TRASTUZUMAB [Concomitant]
     Indication: BREAST CANCER
     Dosage: UNK
     Route: 042
     Dates: start: 20110505
  3. LAPATINIB [Concomitant]
     Indication: BREAST CANCER
     Dosage: 750 mg, qd
     Route: 048
     Dates: start: 20110505
  4. DOCETAXEL [Concomitant]
     Indication: BREAST CANCER
     Dosage: 75 mg/m2, q3wk
     Route: 042
     Dates: start: 20110505
  5. CARBOPLATIN [Concomitant]
     Indication: BREAST CANCER
     Dosage: 1000 mg, qd
     Route: 042
     Dates: start: 20110505

REACTIONS (4)
  - Febrile neutropenia [Recovered/Resolved]
  - Hypotension [Recovered/Resolved]
  - Diarrhoea [Recovered/Resolved]
  - White blood cell count decreased [Recovered/Resolved]
